FAERS Safety Report 21344117 (Version 1)
Quarter: 2022Q3

REPORT INFORMATION
  Report Type: Spontaneous
  Country: CN (occurrence: None)
  Receive Date: 20220916
  Receipt Date: 20220916
  Transmission Date: 20221027
  Serious: Yes (Other)
  Sender: FDA-Public Use
  Company Number: 2022A313851

PATIENT
  Age: 20674 Day
  Sex: Male
  Weight: 74 kg

DRUGS (4)
  1. SODIUM ZIRCONIUM CYCLOSILICATE [Suspect]
     Active Substance: SODIUM ZIRCONIUM CYCLOSILICATE
     Indication: Blood potassium abnormal
     Route: 048
     Dates: start: 20220706
  2. SODIUM ZIRCONIUM CYCLOSILICATE [Suspect]
     Active Substance: SODIUM ZIRCONIUM CYCLOSILICATE
     Indication: Blood potassium abnormal
     Route: 048
  3. LACTULOSE [Concomitant]
     Active Substance: LACTULOSE
     Route: 048
  4. SHENWU YISHEN [Concomitant]
     Indication: Defaecation urgency
     Dosage: 4 TABLETS
     Route: 048

REACTIONS (1)
  - Constipation [Recovering/Resolving]

NARRATIVE: CASE EVENT DATE: 20220710
